FAERS Safety Report 5647907-5 (Version None)
Quarter: 2008Q1

REPORT INFORMATION
  Report Type: 
  Country: None (occurrence: None)
  Receive Date: 20080303
  Receipt Date: 20080222
  Transmission Date: 20080703
  Serious: Yes (Hospitalization, Other)
  Sender: FDA-Public Use
  Company Number: NO-PFIZER INC-2008017802

PATIENT
  Sex: Male
  Weight: 110 kg

DRUGS (7)
  1. CELEBRA [Suspect]
     Indication: FIBROMYALGIA
     Route: 048
     Dates: start: 20020403, end: 20050501
  2. VIOXX [Suspect]
     Indication: FIBROMYALGIA
     Route: 048
     Dates: start: 20021018, end: 20041001
  3. VIOXX [Suspect]
     Indication: MYALGIA
  4. PAROXETINE HCL [Concomitant]
     Indication: DEPRESSION
  5. PREDNISOLONE [Concomitant]
  6. CIPRAMIL [Concomitant]
  7. PARALGIN FORTE [Concomitant]

REACTIONS (13)
  - ANGINA PECTORIS [None]
  - BALANCE DISORDER [None]
  - CEREBRAL ATROPHY [None]
  - DEPRESSION [None]
  - DISTURBANCE IN ATTENTION [None]
  - DYSPNOEA [None]
  - EYE PAIN [None]
  - GENERAL PHYSICAL HEALTH DETERIORATION [None]
  - HYPERTENSION [None]
  - MEMORY IMPAIRMENT [None]
  - MUSCULAR WEAKNESS [None]
  - SILENT MYOCARDIAL INFARCTION [None]
  - TREMOR [None]
